FAERS Safety Report 10071942 (Version 1)
Quarter: 2014Q2

REPORT INFORMATION
  Report Type: Report from Study
  Country: BR (occurrence: BR)
  Receive Date: 20140411
  Receipt Date: 20140411
  Transmission Date: 20141212
  Serious: Yes (Death, Other)
  Sender: FDA-Public Use
  Company Number: BR-ROCHE-1380304

PATIENT
  Sex: Female

DRUGS (2)
  1. AVASTIN [Suspect]
     Indication: COLORECTAL CANCER
     Route: 065
     Dates: start: 201207
  2. AVASTIN [Suspect]
     Dosage: THERAPY RECEIVED DATES: 21/AUG/2013, 02/OCT/2013, 16/OCT/2013, 30/OCT/2013 AND ON 13-NOV-2013.
     Route: 065

REACTIONS (4)
  - Death [Fatal]
  - Metastases to liver [Unknown]
  - Metastases to lung [Unknown]
  - Influenza [Unknown]
